FAERS Safety Report 5334370-7 (Version None)
Quarter: 2007Q2

REPORT INFORMATION
  Report Type: 
  Country: None (occurrence: None)
  Receive Date: 20070525
  Receipt Date: 20070515
  Transmission Date: 20071010
  Serious: Yes (Hospitalization, Other)
  Sender: FDA-Public Use
  Company Number: PHEH2007US05631

PATIENT
  Age: 80 Year
  Sex: Male
  Weight: 56.689 kg

DRUGS (3)
  1. ZELNORM [Suspect]
     Indication: CONSTIPATION
     Dosage: 6 MG, BID
     Route: 048
     Dates: start: 20060501
  2. CAPTOPRIL [Concomitant]
     Indication: HYPERTENSION
     Dosage: 50 MG, BID
     Route: 048
  3. TYLENOL [Concomitant]
     Indication: BACK PAIN
     Dosage: 500 MG, BID
     Route: 048

REACTIONS (9)
  - ABDOMINAL PAIN UPPER [None]
  - ARTHRALGIA [None]
  - BACK PAIN [None]
  - CHEST PAIN [None]
  - FATIGUE [None]
  - MALAISE [None]
  - NEOPLASM MALIGNANT [None]
  - SPINAL FRACTURE [None]
  - WEIGHT DECREASED [None]
